FAERS Safety Report 11620209 (Version 1)
Quarter: 2015Q4

REPORT INFORMATION
  Report Type: Spontaneous
  Country: US (occurrence: US)
  Receive Date: 20151012
  Receipt Date: 20151012
  Transmission Date: 20160304
  Serious: No
  Sender: FDA-Public Use
  Company Number: US-BAYER-2015-441738

PATIENT
  Age: 82 Year
  Sex: Female
  Weight: 77.9 kg

DRUGS (1)
  1. MIRALAX [Suspect]
     Active Substance: POLYETHYLENE GLYCOL 3350
     Indication: CONSTIPATION
     Dosage: 3 DF, BID
     Route: 048
     Dates: start: 2014

REACTIONS (2)
  - Off label use [None]
  - Muscular weakness [Unknown]

NARRATIVE: CASE EVENT DATE: 2014
